FAERS Safety Report 8491905-3 (Version None)
Quarter: 2012Q3

REPORT INFORMATION
  Report Type: 
  Country: None (occurrence: None)
  Receive Date: 20120706
  Receipt Date: 20111209
  Transmission Date: 20120928
  Serious: No
  Sender: FDA-Public Use
  Company Number: US-GLAXOSMITHKLINE-A0957540A

PATIENT
  Age: 74 Year
  Sex: Female

DRUGS (15)
  1. FLOVENT [Suspect]
     Indication: DYSPNOEA
     Dosage: 2PUFF PER DAY
     Route: 055
     Dates: start: 20090101
  2. LEVOTHYROXINE SODIUM [Concomitant]
  3. POTASSIUM [Concomitant]
  4. CALCIUM CARBONATE [Concomitant]
  5. UNKNOWN DRUG [Concomitant]
  6. FERROUS SULFATE TAB [Concomitant]
  7. CYCLOBENZAPRINE [Concomitant]
  8. LOVASTATIN [Concomitant]
  9. PREDNISOLONE [Concomitant]
  10. METFORMIN HCL [Concomitant]
  11. ASPIRIN [Concomitant]
  12. MECLIZINE [Concomitant]
  13. HYDROCHLOROTHIAZIDE [Concomitant]
  14. SALSALATE [Concomitant]
  15. QUINAPRIL [Concomitant]

REACTIONS (2)
  - DYSPNOEA EXERTIONAL [None]
  - PRODUCT QUALITY ISSUE [None]
